FAERS Safety Report 7671882-5 (Version None)
Quarter: 2011Q3

REPORT INFORMATION
  Report Type: 
  Country: None (occurrence: None)
  Receive Date: 20110809
  Receipt Date: 20110722
  Transmission Date: 20111222
  Serious: Yes (Hospitalization)
  Sender: FDA-Public Use
  Company Number: US-GLAXOSMITHKLINE-A0833661A

PATIENT
  Age: 67 Year
  Sex: Male
  Weight: 96.4 kg

DRUGS (3)
  1. ACTOS [Concomitant]
  2. AVANDIA [Suspect]
     Indication: DIABETES MELLITUS
     Dosage: 2MG TWICE PER DAY
     Route: 048
     Dates: start: 19990501
  3. METFORMIN HCL [Concomitant]

REACTIONS (5)
  - ISCHAEMIC STROKE [None]
  - CORONARY ARTERY DISEASE [None]
  - RENAL FAILURE [None]
  - DIABETES MELLITUS [None]
  - CEREBROVASCULAR ACCIDENT [None]
